FAERS Safety Report 14930065 (Version 2)
Quarter: 2019Q2

REPORT INFORMATION
  Report Type: Spontaneous
  Country: ES (occurrence: ES)
  Receive Date: 20180523
  Receipt Date: 20190429
  Transmission Date: 20190711
  Serious: Yes (Other)
  Sender: FDA-Public Use
  Company Number: ES-MYLANLABS-2018M1033194

PATIENT
  Age: 71 Year
  Sex: Male

DRUGS (3)
  1. DILTIWAS [Interacting]
     Active Substance: DILTIAZEM HYDROCHLORIDE
     Indication: PRODUCT USED FOR UNKNOWN INDICATION
     Dosage: 120 MG, QD
     Route: 048
     Dates: start: 20180206, end: 20180206
  2. ANGIODROX 120 MG C?PSULAS DURAS DE LIBERACI?N PROLONGADA [Suspect]
     Active Substance: DILTIAZEM HYDROCHLORIDE
     Indication: PRODUCT USED FOR UNKNOWN INDICATION
     Dosage: 120 MG, QD
     Route: 048
     Dates: start: 20180206, end: 20180206
  3. DOCLIS [Interacting]
     Active Substance: DILTIAZEM HYDROCHLORIDE
     Indication: PRODUCT USED FOR UNKNOWN INDICATION
     Dosage: UNK
     Route: 048
     Dates: start: 20180206, end: 20180206

REACTIONS (4)
  - Dizziness [Recovered/Resolved]
  - Hypotension [Recovered/Resolved]
  - Drug interaction [Unknown]
  - Product dispensing error [Recovered/Resolved]

NARRATIVE: CASE EVENT DATE: 20180206
